FAERS Safety Report 8804918 (Version 3)
Quarter: 2014Q2

REPORT INFORMATION
  Report Type: Spontaneous
  Country: US (occurrence: US)
  Receive Date: 20120924
  Receipt Date: 20131018
  Transmission Date: 20141212
  Serious: Yes (Other)
  Sender: FDA-Public Use
  Company Number: US-PFIZER INC-2012233869

PATIENT
  Age: 32 Year
  Sex: Male

DRUGS (5)
  1. CORTEF [Suspect]
     Indication: MALAISE
     Dosage: 5 MG, 2 EVERY AM
  2. CORTEF [Suspect]
     Dosage: UNK, 1 EVERY PM (DOUBLE DOSE WHEN SICK)
  3. SYNTHROID [Concomitant]
     Dosage: UNK
  4. ANDROGEL [Concomitant]
     Dosage: UNK
  5. VITAMIN D3 [Concomitant]
     Dosage: UNK

REACTIONS (7)
  - Pneumonia [Unknown]
  - Hypopituitarism [Unknown]
  - Hypothyroidism [Unknown]
  - Depression [Unknown]
  - Erectile dysfunction [Unknown]
  - Osteoporosis [Unknown]
  - Vitamin D deficiency [Unknown]
